FAERS Safety Report 25807062 (Version 1)
Quarter: 2025Q3

REPORT INFORMATION
  Report Type: Spontaneous
  Country: US (occurrence: None)
  Receive Date: 20250915
  Receipt Date: 20250915
  Transmission Date: 20251021
  Serious: Yes (Other)
  Sender: FDA-CTU
  Company Number: None

PATIENT
  Sex: Female
  Weight: 65.77 kg

DRUGS (9)
  1. BRUKINSA [Suspect]
     Active Substance: ZANUBRUTINIB
     Indication: Chronic lymphocytic leukaemia
     Dosage: FREQUENCY : TWICE A DAY;?
     Route: 048
     Dates: start: 20221228
  2. BRUKINSA [Suspect]
     Active Substance: ZANUBRUTINIB
     Indication: Nodal marginal zone B-cell lymphoma
  3. Unithroid 100mcg [Concomitant]
  4. ATORVASTATIN [Concomitant]
     Active Substance: ATORVASTATIN
  5. Vitamin D3 5000 IU [Concomitant]
  6. Cal-Citrate 250mg [Concomitant]
  7. VITAMIN C [Concomitant]
     Active Substance: ASCORBIC ACID
  8. Iron 65 mg [Concomitant]
  9. B-complex 100 [Concomitant]

REACTIONS (2)
  - Increased tendency to bruise [None]
  - Von Willebrand^s disease [None]
